FAERS Safety Report 13027088 (Version 2)
Quarter: 2017Q1

REPORT INFORMATION
  Report Type: Spontaneous
  Country: US (occurrence: US)
  Receive Date: 20161214
  Receipt Date: 20170102
  Transmission Date: 20170428
  Serious: No
  Sender: FDA-Public Use
  Company Number: US-MEDA-2016120012

PATIENT
  Age: 80 Year
  Sex: Male
  Weight: 88 kg

DRUGS (5)
  1. MUSE [Suspect]
     Active Substance: ALPROSTADIL
     Indication: ERECTILE DYSFUNCTION
     Route: 066
     Dates: start: 201611
  2. CLARITIN [Concomitant]
     Active Substance: LORATADINE
     Indication: RHINITIS ALLERGIC
  3. LOVASTATIN. [Concomitant]
     Active Substance: LOVASTATIN
     Indication: BLOOD CHOLESTEROL INCREASED
  4. NORVASC [Concomitant]
     Active Substance: AMLODIPINE BESYLATE
     Indication: HYPERTENSION
  5. VIAGRA [Concomitant]
     Active Substance: SILDENAFIL CITRATE

REACTIONS (6)
  - Erection increased [Recovered/Resolved]
  - Genital discomfort [Recovered/Resolved]
  - Drug ineffective [Recovered/Resolved]
  - Urethral injury [Unknown]
  - Penile haemorrhage [Recovered/Resolved]
  - Wrong technique in product usage process [Recovered/Resolved]

NARRATIVE: CASE EVENT DATE: 201611
